FAERS Safety Report 25192727 (Version 1)
Quarter: 2025Q2

REPORT INFORMATION
  Report Type: Report from Study
  Country: AT (occurrence: AT)
  Receive Date: 20250414
  Receipt Date: 20250414
  Transmission Date: 20250716
  Serious: Yes (Other)
  Sender: PHARMAESSENTIA
  Company Number: AT-PHARMAESSENTIA CORPORATION-AT-2024-PEC-005306

PATIENT
  Age: 57 Year
  Sex: Male

DRUGS (9)
  1. BESREMI [Suspect]
     Active Substance: ROPEGINTERFERON ALFA-2B-NJFT
     Indication: Polycythaemia vera
     Dosage: 100 MCG, Q2W
     Route: 058
     Dates: start: 20221216, end: 20221230
  2. BESREMI [Suspect]
     Active Substance: ROPEGINTERFERON ALFA-2B-NJFT
     Dosage: 150 MCG, Q2W
     Route: 058
     Dates: start: 20221230, end: 20230202
  3. BESREMI [Suspect]
     Active Substance: ROPEGINTERFERON ALFA-2B-NJFT
     Dosage: 200 MCG, Q2W
     Route: 058
     Dates: start: 20230202, end: 20230303
  4. BESREMI [Suspect]
     Active Substance: ROPEGINTERFERON ALFA-2B-NJFT
     Dosage: 250 MCG, Q2W
     Route: 058
     Dates: start: 20230303, end: 20230616
  5. BESREMI [Suspect]
     Active Substance: ROPEGINTERFERON ALFA-2B-NJFT
     Dosage: 300 MCG, Q2W
     Route: 058
     Dates: start: 20230616, end: 20230717
  6. BESREMI [Suspect]
     Active Substance: ROPEGINTERFERON ALFA-2B-NJFT
     Dosage: 350 MCG, Q2W
     Route: 058
     Dates: start: 20230717
  7. ACETAMINOPHEN [Concomitant]
     Active Substance: ACETAMINOPHEN
     Indication: Premedication
     Route: 065
     Dates: start: 20221216
  8. ASPIRIN [Concomitant]
     Active Substance: ASPIRIN
     Indication: Thrombosis prophylaxis
     Route: 048
     Dates: start: 20230915
  9. Uralyt u [Concomitant]
     Indication: Renal colic
     Route: 048
     Dates: start: 202406, end: 202406

REACTIONS (2)
  - Myelofibrosis [Not Recovered/Not Resolved]
  - Off label use [Not Recovered/Not Resolved]

NARRATIVE: CASE EVENT DATE: 20230915
